FAERS Safety Report 8993385 (Version 1)
Quarter: 2013Q1

REPORT INFORMATION
  Report Type: Spontaneous
  Country: US (occurrence: US)
  Receive Date: 20130102
  Receipt Date: 20130102
  Transmission Date: 20140127
  Serious: Yes (Other)
  Sender: FDA-Public Use
  Company Number: CHPA2012US025719

PATIENT
  Age: 66 Year
  Sex: Male

DRUGS (1)
  1. EXCEDRIN EXTRA STRENGTH [Suspect]
     Indication: HEADACHE
     Dosage: 1 TABLET, UNK
     Route: 048
     Dates: end: 2011

REACTIONS (3)
  - Bladder cancer [Recovered/Resolved]
  - Glaucoma [Recovered/Resolved]
  - Incorrect dose administered [Unknown]
